FAERS Safety Report 6255751-3 (Version None)
Quarter: 2009Q3

REPORT INFORMATION
  Report Type: 
  Country: None (occurrence: None)
  Receive Date: 20090701
  Receipt Date: 20090617
  Transmission Date: 20100115
  Serious: Yes (Life-Threatening, Hospitalization, Other)
  Sender: FDA-Public Use
  Company Number: 2009S1008517

PATIENT
  Age: 11 Year
  Sex: Female

DRUGS (3)
  1. LAMOTRIGINE [Suspect]
     Indication: CONVULSION
     Dosage: 0.7 MG/KG; UNKNOWN; ORAL
     Route: 048
  2. VALPROIC ACID [Suspect]
     Indication: CONVULSION
     Dosage: 300 MG;ORAL;TWICE A DAY; 200 MG;ORAL;TWICE A DAY
     Route: 048
  3. VALPROATE SODIUM [Concomitant]

REACTIONS (21)
  - ALOPECIA [None]
  - BONE SCAN ABNORMAL [None]
  - CONDITION AGGRAVATED [None]
  - DISSEMINATED INTRAVASCULAR COAGULATION [None]
  - DRUG INTERACTION [None]
  - GASTROINTESTINAL HAEMORRHAGE [None]
  - HAEMORRHAGE [None]
  - HYPERNATRAEMIA [None]
  - HYPERSENSITIVITY [None]
  - HYPOTENSION [None]
  - LIP BLISTER [None]
  - MULTI-ORGAN FAILURE [None]
  - ORAL MUCOSA EROSION [None]
  - PERIORBITAL OEDEMA [None]
  - PYREXIA [None]
  - RASH MACULO-PAPULAR [None]
  - RENAL FAILURE [None]
  - RHABDOMYOLYSIS [None]
  - SOMNOLENCE [None]
  - TOXIC SHOCK SYNDROME [None]
  - VAGINAL HAEMORRHAGE [None]
